FAERS Safety Report 9120610 (Version 1)
Quarter: 2013Q1

REPORT INFORMATION
  Report Type: Spontaneous
  Country: US (occurrence: US)
  Receive Date: 20130226
  Receipt Date: 20130226
  Transmission Date: 20140127
  Serious: No
  Sender: FDA-Public Use
  Company Number: US-PFIZER INC-2013070081

PATIENT
  Age: 58 Year
  Sex: Male
  Weight: 86 kg

DRUGS (1)
  1. CELEBREX [Suspect]
     Indication: BURSITIS
     Dosage: 200 MG, 1X/DAY
     Route: 048
     Dates: start: 201302, end: 20130221

REACTIONS (2)
  - Neuralgia [Not Recovered/Not Resolved]
  - Off label use [Unknown]
